FAERS Safety Report 4930227-1 (Version None)
Quarter: 2006Q1

REPORT INFORMATION
  Report Type: 
  Country: None (occurrence: None)
  Receive Date: 20060302
  Receipt Date: 20060217
  Transmission Date: 20060701
  Serious: Yes (Life-Threatening, Hospitalization)
  Sender: FDA-Public Use
  Company Number: PHBS2006VE02619

PATIENT
  Sex: Female

DRUGS (1)
  1. DIOVAN HCT [Suspect]
     Dosage: VALS 160 / HCT 12.5 MG

REACTIONS (3)
  - CEREBROVASCULAR DISORDER [None]
  - DYSARTHRIA [None]
  - HEMIPLEGIA [None]
